FAERS Safety Report 5081963-0 (Version None)
Quarter: 2006Q3

REPORT INFORMATION
  Report Type: 
  Country: None (occurrence: None)
  Receive Date: 20060811
  Receipt Date: 20060530
  Transmission Date: 20061208
  Serious: Yes (Hospitalization)
  Sender: FDA-Public Use
  Company Number: 225643

PATIENT
  Age: 71 Year
  Sex: Male
  Weight: 65 kg

DRUGS (3)
  1. AVASTIN [Suspect]
     Indication: COLORECTAL CANCER METASTATIC
     Dosage: 5 MG/KG, Q2W, INTRAVENOUS
     Route: 042
     Dates: start: 20050718, end: 20060529
  2. IRINOTECAN HCL [Suspect]
     Indication: COLORECTAL CANCER METASTATIC
     Dosage: 263 MG, Q2W, INTRAVENOUS
     Route: 042
     Dates: start: 20050718
  3. FLUOROURACIL [Suspect]
     Indication: COLORECTAL CANCER METASTATIC
     Dosage: 700 MG, Q2W, INTRAVENOUS; 4200 MG, Q2W, INTRAVENOUS
     Route: 042
     Dates: start: 20050718

REACTIONS (1)
  - SMALL INTESTINAL OBSTRUCTION [None]
